FAERS Safety Report 6461779-0 (Version None)
Quarter: 2009Q4

REPORT INFORMATION
  Report Type: 
  Country: None (occurrence: None)
  Receive Date: 20091130
  Receipt Date: 20091118
  Transmission Date: 20100525
  Serious: Yes (Other)
  Sender: FDA-Public Use
  Company Number: PHHY2009BR51081

PATIENT
  Age: 31 Year
  Sex: Male
  Weight: 53 kg

DRUGS (1)
  1. DICLOFENAC SODIUM [Suspect]
     Indication: INFLAMMATION
     Dosage: ONE CAPSULE TWICE DAILY
     Route: 048
     Dates: start: 20091113

REACTIONS (1)
  - EYE SWELLING [None]
